FAERS Safety Report 10634760 (Version 1)
Quarter: 2014Q4

REPORT INFORMATION
  Report Type: Spontaneous
  Country: US (occurrence: US)
  Receive Date: 20141205
  Receipt Date: 20141205
  Transmission Date: 20150529
  Serious: Yes (Hospitalization)
  Sender: FDA-Public Use
  Company Number: US-ELI_LILLY_AND_COMPANY-US201412001475

PATIENT
  Age: 86 Year
  Sex: Male
  Weight: 81.63 kg

DRUGS (1)
  1. HUMALOG [Suspect]
     Active Substance: INSULIN LISPRO
     Indication: PRODUCT USED FOR UNKNOWN INDICATION
     Route: 058

REACTIONS (3)
  - Fall [Unknown]
  - Blood glucose increased [Unknown]
  - Skeletal injury [Unknown]

NARRATIVE: CASE EVENT DATE: 20141129
